FAERS Safety Report 5353995-6 (Version None)
Quarter: 2007Q2

REPORT INFORMATION
  Report Type: 
  Country: None (occurrence: None)
  Receive Date: 20070612
  Receipt Date: 20070531
  Transmission Date: 20071010
  Serious: No
  Sender: FDA-Public Use
  Company Number: US-ASTRAZENECA-2006UW07892

PATIENT
  Age: 263 Month
  Sex: Male
  Weight: 77.3 kg

DRUGS (3)
  1. SEROQUEL [Suspect]
     Indication: DEPRESSION
     Route: 048
  2. GEODON [Concomitant]
  3. STELAZINE [Concomitant]

REACTIONS (1)
  - DIABETES MELLITUS [None]
